FAERS Safety Report 8366665-7 (Version None)
Quarter: 2012Q2

REPORT INFORMATION
  Report Type: 
  Country: None (occurrence: None)
  Receive Date: 20120517
  Receipt Date: 20120508
  Transmission Date: 20120825
  Serious: Yes (Disabling)
  Sender: FDA-Public Use
  Company Number: CA-CELGENEUS-028-21880-12021244

PATIENT

DRUGS (23)
  1. TENORMIN [Concomitant]
     Route: 065
     Dates: start: 20110917
  2. RED BLOOD CELLS [Concomitant]
     Route: 041
     Dates: start: 20111025, end: 20111026
  3. FENTANYL-100 [Concomitant]
     Indication: ADVERSE EVENT
     Route: 062
     Dates: start: 20120112
  4. HYDROMORPHONE HCL [Concomitant]
     Indication: ADVERSE EVENT
     Route: 065
     Dates: start: 20120104
  5. PAMIDRONATE DISODIUM [Concomitant]
     Route: 065
     Dates: start: 20100801
  6. TENORMIN [Concomitant]
     Route: 065
     Dates: start: 20020101, end: 20110916
  7. SODIUM PHOSPHATES [Concomitant]
     Indication: ADVERSE EVENT
     Route: 054
     Dates: start: 20110911, end: 20110911
  8. DILAUDID [Concomitant]
     Indication: ADVERSE EVENT
     Route: 065
     Dates: start: 20111018
  9. WARFARIN SODIUM [Concomitant]
     Route: 065
     Dates: start: 20020101
  10. PACKED RED BLOOD CELLS - IRRADIATED [Concomitant]
     Indication: ADVERSE EVENT
     Dosage: 2 UNITS
     Route: 041
     Dates: start: 20111004, end: 20111004
  11. MORPHINE [Concomitant]
     Indication: ADVERSE EVENT
     Route: 065
     Dates: start: 20120114
  12. REVLIMID [Suspect]
     Indication: MULTIPLE MYELOMA
     Dosage: 15 MILLIGRAM
     Route: 048
     Dates: start: 20111227, end: 20120109
  13. RED BLOOD CELLS [Concomitant]
     Indication: ADVERSE EVENT
     Dosage: 2 UNITS
     Route: 041
     Dates: start: 20111004, end: 20111004
  14. SODIUM CHLORIDE [Concomitant]
     Indication: ADVERSE EVENT
     Route: 041
     Dates: start: 20110913, end: 20110913
  15. DEXAMETHASONE [Suspect]
     Indication: MULTIPLE MYELOMA
     Dosage: 40 MILLIGRAM
     Route: 048
     Dates: start: 20111220, end: 20120103
  16. ALDACTONE [Concomitant]
     Route: 065
     Dates: start: 20030101, end: 20110916
  17. LYRICA [Concomitant]
     Indication: ADVERSE EVENT
     Route: 065
     Dates: start: 20120104
  18. SYNTHROID [Concomitant]
     Route: 065
     Dates: start: 20081201
  19. ALDACTONE [Concomitant]
     Route: 065
     Dates: start: 20110917
  20. PACKED RED BLOOD CELLS - IRRADIATED [Concomitant]
     Dosage: 2 UNITS
     Route: 041
     Dates: start: 20120104, end: 20120104
  21. DILAUDID [Concomitant]
     Route: 065
     Dates: start: 20120115
  22. LACTULOSE [Concomitant]
     Indication: ADVERSE EVENT
     Route: 065
     Dates: start: 20111017
  23. NEXIUM [Concomitant]
     Indication: ADVERSE EVENT
     Route: 065
     Dates: start: 20111025

REACTIONS (1)
  - ABASIA [None]
